FAERS Safety Report 25104925 (Version 2)
Quarter: 2025Q2

REPORT INFORMATION
  Report Type: Spontaneous
  Country: US (occurrence: US)
  Receive Date: 20250321
  Receipt Date: 20250402
  Transmission Date: 20250717
  Serious: No
  Sender: BRISTOL MYERS SQUIBB
  Company Number: US-BRISTOL-MYERS SQUIBB COMPANY-2025-041988

PATIENT
  Age: 69 Year
  Sex: Male

DRUGS (3)
  1. THALOMID [Suspect]
     Active Substance: THALIDOMIDE
     Indication: Iron deficiency anaemia
     Route: 048
  2. THALOMID [Suspect]
     Active Substance: THALIDOMIDE
     Indication: Gastrointestinal vascular malformation haemorrhagic
  3. THALOMID [Suspect]
     Active Substance: THALIDOMIDE
     Indication: Malabsorption

REACTIONS (3)
  - Off label use [Unknown]
  - Inability to afford medication [Unknown]
  - Muscle spasms [Unknown]
